FAERS Safety Report 8082208-X (Version None)
Quarter: 2012Q1

REPORT INFORMATION
  Report Type: 
  Country: None (occurrence: None)
  Receive Date: 20120127
  Receipt Date: 20110131
  Transmission Date: 20120608
  Serious: No
  Sender: FDA-Public Use
  Company Number: US-ABBOTT-11P-163-0702075-00

PATIENT
  Sex: Male
  Weight: 145.28 kg

DRUGS (2)
  1. HUMIRA [Suspect]
     Indication: PSORIASIS
     Route: 058
     Dates: start: 20101001, end: 20101201
  2. HUMIRA [Suspect]
     Indication: PSORIATIC ARTHROPATHY
     Route: 058
     Dates: start: 20110101

REACTIONS (9)
  - ARTHRITIS [None]
  - PAIN [None]
  - OEDEMA PERIPHERAL [None]
  - OPEN WOUND [None]
  - NASOPHARYNGITIS [None]
  - COUGH [None]
  - DRUG DOSE OMISSION [None]
  - ANAEMIA [None]
  - HEPATIC ENZYME INCREASED [None]
